FAERS Safety Report 6723950-X (Version None)
Quarter: 2010Q2

REPORT INFORMATION
  Report Type: 
  Country: None (occurrence: None)
  Receive Date: 20100513
  Receipt Date: 20100504
  Transmission Date: 20101027
  Serious: Yes (Hospitalization)
  Sender: FDA-Public Use
  Company Number: US-AMGEN-QUU405481

PATIENT
  Sex: Female

DRUGS (3)
  1. ENBREL [Suspect]
     Indication: RHEUMATOID ARTHRITIS
     Route: 058
     Dates: start: 20100101
  2. PLAQUENIL [Concomitant]
     Route: 048
     Dates: start: 20091201
  3. VOLTAREN [Concomitant]
     Dates: start: 20091123, end: 20100201

REACTIONS (1)
  - RHEUMATOID ARTHRITIS [None]
